FAERS Safety Report 13742980 (Version 1)
Quarter: 2017Q3

REPORT INFORMATION
  Report Type: Spontaneous
  Country: FR (occurrence: FR)
  Receive Date: 20170711
  Receipt Date: 20170711
  Transmission Date: 20171127
  Serious: Yes (Other)
  Sender: FDA-Public Use
  Company Number: FR-TEVA-784596ROM

PATIENT
  Age: 79 Year
  Sex: Female

DRUGS (15)
  1. ENDOXAN [Suspect]
     Active Substance: CYCLOPHOSPHAMIDE
     Indication: MANTLE CELL LYMPHOMA STAGE IV
     Dosage: 1260 MILLIGRAM DAILY; FIRST COURSE - R-CHOP PROTOCOL
     Route: 041
     Dates: start: 20161215, end: 20161215
  2. MESNA EG 100 MG/ML [Suspect]
     Active Substance: MESNA
     Indication: DRUG TOXICITY PROPHYLAXIS
     Dosage: 1200 MILLIGRAM DAILY; FIRST COURSE
     Route: 040
     Dates: start: 20161215, end: 20161215
  3. ONDANSETRON ACCORD 2 MG/ML [Suspect]
     Active Substance: ONDANSETRON
     Indication: PROPHYLAXIS OF NAUSEA AND VOMITING
     Dosage: 8 MILLIGRAM DAILY; FIRST COURSE
     Route: 040
     Dates: start: 20161215, end: 20161215
  4. DOXORUBICINE TEVA [Suspect]
     Active Substance: DOXORUBICIN
     Indication: MANTLE CELL LYMPHOMA STAGE IV
     Dosage: 84 MILLIGRAM DAILY; FIRST COURSE -R-CHOP PROTOCOL
     Route: 041
     Dates: start: 20161215, end: 20161215
  5. VINCRISTINE HOSPIRA 2 MG/2 ML [Suspect]
     Active Substance: VINCRISTINE
     Indication: MANTLE CELL LYMPHOMA STAGE IV
     Dosage: 2 MILLIGRAM DAILY; FIRST COURSE - R-CHOP PROTOCOL
     Route: 042
     Dates: start: 20161215, end: 20161215
  6. BACTRIM [Concomitant]
     Active Substance: SULFAMETHOXAZOLE\TRIMETHOPRIM
     Route: 048
     Dates: start: 20161215
  7. METFORMINE 500 MG [Concomitant]
     Dosage: 1000 MILLIGRAM DAILY; 1 DF IN THE MORNING AND 1 DF IN THE NOON
     Route: 048
  8. SPECIAFOLDINE 5 MG [Concomitant]
     Dosage: 2 DOSAGE FORMS DAILY;
     Route: 048
     Dates: start: 20161215
  9. MABTHERA [Suspect]
     Active Substance: RITUXIMAB
     Indication: MANTLE CELL LYMPHOMA STAGE IV
     Dosage: 600 MILLIGRAM DAILY; FIRST COURSE - R-CHOP PROTOCOL
     Route: 041
     Dates: start: 20161215, end: 20161215
  10. KARDEGIC 160 MG [Concomitant]
     Dosage: 1 DOSAGE FORMS DAILY;
     Route: 048
  11. POLARAMINE [Suspect]
     Active Substance: DEXCHLORPHENIRAMINE MALEATE
     Indication: ALLERGY PROPHYLAXIS
     Dosage: 10 MILLIGRAM DAILY; FIRST COURSE
     Route: 040
     Dates: start: 20161215, end: 20161215
  12. DIAMICRON [Concomitant]
     Active Substance: GLICLAZIDE
     Dosage: 60 MILLIGRAM DAILY;
     Route: 048
  13. COTAREG [Concomitant]
     Active Substance: HYDROCHLOROTHIAZIDE\VALSARTAN
     Dosage: 1 DOSAGE FORMS DAILY; 160 MG VALSARTAN +12.5 MG HYDROCHLOROTHIAZIDE
     Route: 048
  14. ZELITREX [Concomitant]
     Active Substance: VALACYCLOVIR HYDROCHLORIDE
     Dosage: 500 MILLIGRAM DAILY;
     Route: 048
     Dates: start: 20161215
  15. PRAVASTATIN. [Concomitant]
     Active Substance: PRAVASTATIN
     Dosage: 20 MILLIGRAM DAILY;
     Route: 048

REACTIONS (1)
  - Polyarthritis [Recovered/Resolved]

NARRATIVE: CASE EVENT DATE: 201612
